FAERS Safety Report 9204570 (Version 1)
Quarter: 2013Q1

REPORT INFORMATION
  Report Type: Spontaneous
  Country: US (occurrence: None)
  Receive Date: 20120709
  Receipt Date: 20120709
  Transmission Date: 20140127
  Serious: No
  Sender: FDA-Public Use
  Company Number: 2012HGS-003483

PATIENT
  Age: 30 Year
  Sex: Female
  Weight: 53.07 kg

DRUGS (4)
  1. BENLYSTA [Suspect]
     Indication: SYSTEMIC LUPUS ERYTHEMATOSUS
     Dosage: 1 IN 28 D
     Route: 041
     Dates: start: 20120330
  2. PLAQUENIL (HYDROXYCHLOROQUINE PHOSPHATE) (HYDROXYCLOROQUINE PHOSPHATE) [Concomitant]
  3. PREDNISONE (PREDNISONE) [Concomitant]
  4. IRON (IRON) (IRON) [Concomitant]

REACTIONS (3)
  - Asthenia [None]
  - Pain [None]
  - Dizziness [None]
